FAERS Safety Report 4874186-9 (Version None)
Quarter: 2006Q1

REPORT INFORMATION
  Report Type: 
  Country: None (occurrence: None)
  Receive Date: 20060106
  Receipt Date: 20051228
  Transmission Date: 20060701
  Serious: Yes (Other)
  Sender: FDA-Public Use
  Company Number: PHEH2005US13911

PATIENT
  Age: 58 Year
  Sex: Female

DRUGS (5)
  1. TRILEPTAL [Suspect]
     Indication: CONVULSION
     Dosage: 300 MG, BID
     Route: 048
     Dates: start: 20040301
  2. METFORMIN [Concomitant]
     Dates: start: 20050101
  3. AVANDIA [Concomitant]
     Dates: start: 20050101
  4. LISINOPRIL [Concomitant]
     Dosage: UNK, UNK
     Dates: start: 20050101
  5. CRESTOR [Concomitant]
     Dates: start: 20050101

REACTIONS (2)
  - DIABETES MELLITUS NON-INSULIN-DEPENDENT [None]
  - THIRST [None]
